FAERS Safety Report 20264471 (Version 2)
Quarter: 2022Q1

REPORT INFORMATION
  Report Type: Spontaneous
  Country: JP (occurrence: None)
  Receive Date: 20211231
  Receipt Date: 20220114
  Transmission Date: 20220423
  Serious: Yes (Other)
  Sender: FDA-Public Use
  Company Number: 2021A901863

PATIENT
  Age: 49 Year
  Sex: Female

DRUGS (55)
  1. DAPAGLIFLOZIN [Suspect]
     Active Substance: DAPAGLIFLOZIN
     Indication: Diabetes mellitus
     Dosage: AFTER BREAKFAST
     Route: 048
     Dates: start: 20170117, end: 20170220
  2. DAPAGLIFLOZIN [Suspect]
     Active Substance: DAPAGLIFLOZIN
     Indication: Diabetes mellitus
     Dosage: AFTER BREAKFAST
     Route: 048
     Dates: start: 20170221, end: 20180302
  3. DAPAGLIFLOZIN [Suspect]
     Active Substance: DAPAGLIFLOZIN
     Indication: Diabetes mellitus
     Dosage: AFTER BREAKFAST
     Route: 048
     Dates: start: 20180303, end: 20180731
  4. SYMBICORT [Suspect]
     Active Substance: BUDESONIDE\FORMOTEROL FUMARATE DIHYDRATE
     Dosage: DOSE UNKNOWN UNKNOWN
     Route: 055
     Dates: start: 20190816
  5. SITAGLIPTIN [Suspect]
     Active Substance: SITAGLIPTIN
     Indication: Diabetes mellitus
     Dosage: AFTER BREAKFAST
     Route: 048
     Dates: start: 20180808, end: 20180910
  6. JANUVIA [Concomitant]
     Active Substance: SITAGLIPTIN PHOSPHATE
     Indication: Diabetes mellitus
     Dosage: AFTER BREAKFAST
     Route: 048
     Dates: start: 20160920, end: 20170825
  7. ACETAMINOPHEN\PSEUDOEPHEDRINE HYDROCHLORIDE [Concomitant]
     Active Substance: ACETAMINOPHEN\PSEUDOEPHEDRINE HYDROCHLORIDE
     Indication: Cough
     Dosage: AFTER MEALS
     Route: 048
     Dates: start: 20170117, end: 20170123
  8. ACETAMINOPHEN\PSEUDOEPHEDRINE HYDROCHLORIDE [Concomitant]
     Active Substance: ACETAMINOPHEN\PSEUDOEPHEDRINE HYDROCHLORIDE
     Indication: Cough
     Dosage: AFTER MEALS
     Route: 048
     Dates: start: 20190116, end: 20190120
  9. TSUMURA [Concomitant]
     Indication: Cough
     Dosage: BEFORE MEALS
     Route: 048
     Dates: start: 20170117, end: 20170123
  10. TSUMURA [Concomitant]
     Indication: Cough
     Dosage: BEFORE MEALS
     Route: 048
     Dates: start: 20190116, end: 20190120
  11. METFORMIN HYDROCHLORIDE\VILDAGLIPTIN [Concomitant]
     Active Substance: METFORMIN HYDROCHLORIDE\VILDAGLIPTIN
     Indication: Diabetes mellitus
     Dosage: HD, AFTER BREAKFAST AND DINNER
     Route: 048
     Dates: start: 20170826, end: 20180303
  12. METFORMIN HYDROCHLORIDE [Concomitant]
     Active Substance: METFORMIN HYDROCHLORIDE
     Indication: Diabetes mellitus
     Dosage: AFTER MEALS
     Route: 048
     Dates: start: 20161005, end: 20170825
  13. METFORMIN HYDROCHLORIDE [Concomitant]
     Active Substance: METFORMIN HYDROCHLORIDE
     Indication: Diabetes mellitus
     Dosage: AFTER BREAKFAST AND DINNER
     Route: 048
     Dates: start: 20170826, end: 20180302
  14. METFORMIN HYDROCHLORIDE [Concomitant]
     Active Substance: METFORMIN HYDROCHLORIDE
     Indication: Diabetes mellitus
     Dosage: AFTER BREAKFAST AND DINNER
     Route: 048
     Dates: start: 20180303, end: 20180802
  15. VILDAGLIPTIN [Concomitant]
     Active Substance: VILDAGLIPTIN
     Indication: Diabetes mellitus
     Dosage: AFTER BREAKFAST AND DINNER
     Route: 048
     Dates: start: 20180303, end: 20180802
  16. VILDAGLIPTIN [Concomitant]
     Active Substance: VILDAGLIPTIN
     Indication: Diabetes mellitus
     Dosage: JUST BEFORE BREAKFAST AND DINNER
     Route: 048
     Dates: start: 20181001, end: 20191026
  17. PIOGLITAZONE [Concomitant]
     Active Substance: PIOGLITAZONE
     Indication: Diabetes mellitus
     Dosage: AFTER BREAKFAST
     Route: 048
     Dates: start: 20180303, end: 20180509
  18. PIOGLITAZONE [Concomitant]
     Active Substance: PIOGLITAZONE
     Indication: Diabetes mellitus
     Dosage: AFTER BREAKFAST
     Route: 048
     Dates: start: 20180510, end: 20180802
  19. MAGNESIUM OXIDE [Concomitant]
     Active Substance: MAGNESIUM OXIDE
     Indication: Constipation
     Dosage: AFTER BREAKFAST AND DINNER
     Route: 048
     Dates: start: 20180407, end: 20180425
  20. FEXOFENADINE HYDROCHLORIDE [Concomitant]
     Active Substance: FEXOFENADINE HYDROCHLORIDE
     Dosage: AFTER BREAKFAST AND DINNER
     Route: 048
     Dates: start: 20180510, end: 20180802
  21. DIPHENHYDRAMINE [Concomitant]
     Active Substance: DIPHENHYDRAMINE
     Route: 062
     Dates: start: 20180510, end: 20180802
  22. MOSAPRIDE CITRATE DIHYDRATE [Concomitant]
     Active Substance: MOSAPRIDE CITRATE DIHYDRATE
     Indication: Gastrointestinal motility disorder
     Dosage: AFTER BREAKFAST AND DINNER
     Route: 048
     Dates: start: 20180731, end: 20180802
  23. JARDIANCE [Concomitant]
     Active Substance: EMPAGLIFLOZIN
     Indication: Diabetes mellitus
     Dosage: AFTER BREAKFAST
     Route: 048
     Dates: start: 20180731, end: 20180802
  24. JARDIANCE [Concomitant]
     Active Substance: EMPAGLIFLOZIN
     Indication: Diabetes mellitus
     Dosage: BEFORE BREAKFAST
     Route: 048
     Dates: start: 20190326, end: 20200213
  25. FAMOTIDINE [Concomitant]
     Active Substance: FAMOTIDINE
     Indication: Hyperchlorhydria
     Dosage: AFTER BREAKFAST AND DINNER
     Route: 048
     Dates: start: 20180802, end: 20180805
  26. TEPRENONE [Concomitant]
     Active Substance: TEPRENONE
     Indication: Gastrointestinal disorder
     Dosage: AFTER MEALS
     Route: 048
     Dates: start: 20180802, end: 20180805
  27. METOCLOPRAMIDE HYDROCHLORIDE [Concomitant]
     Active Substance: METOCLOPRAMIDE HYDROCHLORIDE
     Indication: Vomiting
     Dosage: WHEN QUEASY FEELING, 5 DOSES
     Route: 048
     Dates: start: 20180802
  28. INSULIN NOS [Concomitant]
     Active Substance: INSULIN NOS
     Indication: Diabetes mellitus
     Dosage: DOSE UNKNOWN
     Route: 065
     Dates: start: 20180808
  29. INSULIN NOS [Concomitant]
     Active Substance: INSULIN NOS
     Indication: Diabetes mellitus
     Dosage: BEFORE BEDTIME
     Route: 065
     Dates: start: 20180815, end: 20191118
  30. LANSOPRAZOLE [Concomitant]
     Active Substance: LANSOPRAZOLE
     Indication: Hyperchlorhydria
     Dosage: AFTER BREAKFAST
     Route: 048
     Dates: start: 20180820, end: 20190129
  31. REPAGLINIDE [Concomitant]
     Active Substance: REPAGLINIDE
     Indication: Diabetes mellitus
     Dosage: JUST BEFORE BREAKFAST AND DINNER
     Route: 048
     Dates: start: 20180820, end: 20191118
  32. BISOLVON [Concomitant]
     Active Substance: BROMHEXINE HYDROCHLORIDE
     Indication: Productive cough
     Dosage: AFTER MEALS
     Route: 048
     Dates: start: 20190116, end: 20190120
  33. HYALURONATE SODIUM [Concomitant]
     Active Substance: HYALURONATE SODIUM
     Indication: Prophylaxis
     Dosage: BOTH EYES
     Route: 047
     Dates: start: 20190213
  34. LOXOPROFEN [Concomitant]
     Active Substance: LOXOPROFEN
     Indication: Antipyresis
     Dosage: AFTER MEALS
     Route: 048
     Dates: start: 20190629, end: 20190702
  35. PRANLUKAST [Concomitant]
     Active Substance: PRANLUKAST
     Indication: Hypersensitivity
     Dosage: AFTER BREAKFAST AND DINNER
     Route: 048
     Dates: start: 20190729, end: 20190812
  36. OZEX [Concomitant]
     Indication: Antibiotic prophylaxis
     Dosage: AFTER MEALS
     Route: 048
     Dates: start: 20190816, end: 20190830
  37. REBAMIPIDE [Concomitant]
     Active Substance: REBAMIPIDE
     Indication: Gastrointestinal disorder
     Dosage: AFTER MEALS
     Route: 048
     Dates: start: 20190816, end: 20190830
  38. OLOPATADINE HYDROCHLORIDE [Concomitant]
     Active Substance: OLOPATADINE HYDROCHLORIDE
     Indication: Hypersensitivity
     Dosage: AFTER BREAKFAST AND DINNER
     Route: 048
     Dates: start: 20191027, end: 20191215
  39. HUMALOG [Concomitant]
     Active Substance: INSULIN LISPRO
     Indication: Diabetes mellitus
     Dosage: 10 UNITS IN THE MORNING, 6 UNITS IN THE EVENING
     Route: 065
     Dates: start: 20191026, end: 20191201
  40. HUMALOG [Concomitant]
     Active Substance: INSULIN LISPRO
     Indication: Diabetes mellitus
     Dosage: 12 UNITS IN THE MORNING, 8 UNITS IN THE EVENING
     Route: 065
     Dates: start: 20191202, end: 20200113
  41. HUMALOG [Concomitant]
     Active Substance: INSULIN LISPRO
     Indication: Diabetes mellitus
     Dosage: 16 UNITS IN THE MORNING, 8 UNITS IN THE DAYTIME, 12 UNITS IN THE EVENING
     Route: 065
     Dates: start: 20200114, end: 20200205
  42. HUMALOG [Concomitant]
     Active Substance: INSULIN LISPRO
     Indication: Diabetes mellitus
     Dosage: 18 UNITS IN THE MORNING, 10 UNITS IN THE DAYTIME, 14 UNITS IN THE EVENING
     Route: 065
     Dates: start: 20200206, end: 20200219
  43. HUMALOG [Concomitant]
     Active Substance: INSULIN LISPRO
     Indication: Diabetes mellitus
     Dosage: 18 UNITS IN THE MORNING, 18 UNITS IN THE DAYTIME, 18 UNITS IN THE EVENING
     Route: 065
     Dates: start: 20200220
  44. OLOPATADINE HYDROCHLORIDE [Concomitant]
     Active Substance: OLOPATADINE HYDROCHLORIDE
     Dosage: AFTER BREAKFAST AND DINNER
     Route: 048
     Dates: start: 20200220, end: 20200227
  45. VOALLA [Concomitant]
     Dosage: DOSE UNKNOWN
     Route: 062
     Dates: start: 20180808
  46. HEPARINOID [Concomitant]
     Dosage: DOSE UNKNOWN
     Route: 062
     Dates: start: 20180808
  47. PREDNISOLONE [Concomitant]
     Active Substance: PREDNISOLONE
     Dosage: AFTER MEALS
     Route: 048
     Dates: start: 20190816, end: 20190830
  48. BETAMETHASONE DIPROPIONATE [Concomitant]
     Active Substance: BETAMETHASONE DIPROPIONATE
     Dosage: DOSE UNKNOWN
     Route: 062
     Dates: start: 20191027, end: 20191116
  49. PREDONINE [Concomitant]
     Active Substance: PREDNISOLONE
     Dosage: AFTER MEALS
     Route: 048
     Dates: start: 20191116, end: 20200202
  50. PREDONINE [Concomitant]
     Active Substance: PREDNISOLONE
     Dosage: AFTER MEALS
     Route: 048
     Dates: start: 20200203, end: 20200212
  51. PREDONINE [Concomitant]
     Active Substance: PREDNISOLONE
     Dosage: AFTER MEALS
     Route: 048
     Dates: start: 20191215, end: 20191229
  52. PREDONINE [Concomitant]
     Active Substance: PREDNISOLONE
     Dosage: AFTER MEALS
     Route: 048
     Dates: start: 20200222, end: 20200227
  53. PREDONINE [Concomitant]
     Active Substance: PREDNISOLONE
     Dosage: AFTER BREAKFAST AND DINNER
     Route: 048
     Dates: start: 20200213, end: 20200221
  54. DIFLAL [Concomitant]
     Route: 062
     Dates: start: 20191116, end: 20200203
  55. DIFLORASONE DIACETATE [Concomitant]
     Active Substance: DIFLORASONE DIACETATE
     Route: 062
     Dates: start: 20200203

REACTIONS (1)
  - Pemphigoid [Recovered/Resolved]

NARRATIVE: CASE EVENT DATE: 20200226
